FAERS Safety Report 19361610 (Version 1)
Quarter: 2021Q2

REPORT INFORMATION
  Report Type: Report from Study
  Country: None (occurrence: US)
  Receive Date: 20210602
  Receipt Date: 20210602
  Transmission Date: 20210717
  Serious: Yes (Hospitalization)
  Sender: FDA-Public Use
  Company Number: US-MDD US OPERATIONS-USW202005-000953

PATIENT
  Age: 80 Year
  Sex: Male
  Weight: 66.22 kg

DRUGS (30)
  1. APOKYN [Suspect]
     Active Substance: APOMORPHINE HYDROCHLORIDE
     Route: 058
  2. MOVANTIK [Concomitant]
     Active Substance: NALOXEGOL OXALATE
  3. LORAZEPAM. [Concomitant]
     Active Substance: LORAZEPAM
  4. FINASTERIDE. [Concomitant]
     Active Substance: FINASTERIDE
  5. BISACODYL. [Concomitant]
     Active Substance: BISACODYL
  6. ASPIRIN. [Concomitant]
     Active Substance: ASPIRIN
  7. GLUCOSAMINE?CHONDROITIN?D3 [Concomitant]
     Dosage: UNKNOWN
  8. LOSARTAN POTASSIUM. [Concomitant]
     Active Substance: LOSARTAN POTASSIUM
  9. APOKYN [Suspect]
     Active Substance: APOMORPHINE HYDROCHLORIDE
  10. AMANTADINE. [Concomitant]
     Active Substance: AMANTADINE HYDROCHLORIDE
  11. APOMORPHINE HCL [Concomitant]
     Dosage: UNKNOWN
  12. VITAMIN E [Concomitant]
     Active Substance: .ALPHA.-TOCOPHEROL
  13. COENZYME Q10 [Concomitant]
     Active Substance: DIETARY SUPPLEMENT\UBIDECARENONE
  14. LACTULOSE. [Concomitant]
     Active Substance: LACTULOSE
  15. DOCUSATE SODIUM. [Concomitant]
     Active Substance: DOCUSATE SODIUM
  16. ALENDRONATE SODIUM. [Concomitant]
     Active Substance: ALENDRONATE SODIUM
  17. AMITIZA [Concomitant]
     Active Substance: LUBIPROSTONE
  18. RANITIDINE HCL [Concomitant]
     Active Substance: RANITIDINE HYDROCHLORIDE
  19. APOKYN [Suspect]
     Active Substance: APOMORPHINE HYDROCHLORIDE
  20. CARBIDOPA?LEVODOPA?ENTACAPONE [Concomitant]
     Active Substance: CARBIDOPA\ENTACAPONE\LEVODOPA
     Dosage: UNKNOWN
  21. MAGNESIUM CITRATE. [Concomitant]
     Active Substance: MAGNESIUM CITRATE
     Dosage: UNKNOWN
  22. APOKYN [Suspect]
     Active Substance: APOMORPHINE HYDROCHLORIDE
     Indication: PARKINSON^S DISEASE
     Route: 058
     Dates: start: 201311
  23. APOKYN [Suspect]
     Active Substance: APOMORPHINE HYDROCHLORIDE
  24. VITAMIN D2 [Concomitant]
     Active Substance: ERGOCALCIFEROL
  25. OMEPRAZOLE DR [Concomitant]
     Active Substance: OMEPRAZOLE
  26. FLOMAX [Concomitant]
     Active Substance: TAMSULOSIN HYDROCHLORIDE
  27. FISH OIL?VIT D3 [Concomitant]
  28. MIRALAX [Concomitant]
     Active Substance: POLYETHYLENE GLYCOL 3350
  29. CLOZAPINE. [Concomitant]
     Active Substance: CLOZAPINE
  30. CARVEDILOL. [Concomitant]
     Active Substance: CARVEDILOL

REACTIONS (2)
  - Confusional state [Unknown]
  - Hallucination [Unknown]

NARRATIVE: CASE EVENT DATE: 20200326
